FAERS Safety Report 19723839 (Version 1)
Quarter: 2021Q3

REPORT INFORMATION
  Report Type: Spontaneous
  Country: DE (occurrence: DE)
  Receive Date: 20210820
  Receipt Date: 20210820
  Transmission Date: 20211014
  Serious: Yes (Hospitalization, Other)
  Sender: FDA-Public Use
  Company Number: DE-AUROBINDO-AUR-APL-2012-00722

PATIENT
  Age: 28 Day
  Sex: Male
  Weight: 3.7 kg

DRUGS (11)
  1. FEMIBION [Concomitant]
     Indication: PROPHYLAXIS OF NEURAL TUBE DEFECT
     Dosage: .4 MG,DAILY,
     Route: 064
  2. SAROTEN [Concomitant]
     Active Substance: AMITRIPTYLINE
     Indication: DEPRESSION
     Dosage: 150 MILLIGRAM, DAILY
     Route: 064
     Dates: start: 20101126, end: 20110104
  3. CYMBALTA [Concomitant]
     Active Substance: DULOXETINE HYDROCHLORIDE
     Indication: DEPRESSION
     Dosage: 60 MG,DAILY,
     Route: 064
     Dates: start: 20101126, end: 20110104
  4. TRUXAL [Concomitant]
     Active Substance: CHLORPROTHIXENE
     Indication: DEPRESSION
     Dosage: 50 MILLIGRAM, DAILY
     Route: 064
     Dates: start: 20101126, end: 20110104
  5. OXYCODONE [Suspect]
     Active Substance: OXYCODONE
     Dosage: 10 MG,DAILY,
     Route: 064
     Dates: end: 20110822
  6. SEVREDOL [Concomitant]
     Active Substance: MORPHINE
     Indication: PAIN
     Dosage: 40 MG,DAILY,3 TO 4 TIMES PER WEEK
     Route: 064
     Dates: start: 20101126, end: 20110104
  7. VOMEX A [Concomitant]
     Active Substance: DIMENHYDRINATE
     Indication: MORNING SICKNESS
     Dosage: 150 MILLIGRAM, DAILY
     Route: 064
     Dates: start: 20110107, end: 20110315
  8. SERTRALINE [Suspect]
     Active Substance: SERTRALINE HYDROCHLORIDE
     Indication: DEPRESSION
     Dosage: 50 MILLIGRAM, DAILY
     Route: 064
     Dates: start: 20110107, end: 20110822
  9. CIPRALEX [Concomitant]
     Active Substance: ESCITALOPRAM OXALATE
     Indication: DEPRESSION
     Dosage: 30 MG,DAILY,
     Route: 064
     Dates: start: 20101126, end: 20110104
  10. FOLIC ACID. [Concomitant]
     Active Substance: FOLIC ACID
     Indication: PROPHYLAXIS OF NEURAL TUBE DEFECT
     Dosage: 0.4 MILLIGRAM, DAILY
     Route: 064
  11. OXYCODONE [Suspect]
     Active Substance: OXYCODONE
     Indication: PAIN
     Dosage: 70 MG,DAILY,
     Route: 064
     Dates: start: 20101126

REACTIONS (3)
  - Neonatal respiratory distress [Recovered/Resolved]
  - Foetal exposure during pregnancy [Recovered/Resolved]
  - Drug withdrawal syndrome neonatal [Recovered/Resolved]

NARRATIVE: CASE EVENT DATE: 20110822
